FAERS Safety Report 4970969-5 (Version None)
Quarter: 2006Q2

REPORT INFORMATION
  Report Type: 
  Country: None (occurrence: None)
  Receive Date: 20060411
  Receipt Date: 20060411
  Transmission Date: 20061013
  Serious: Yes (Hospitalization)
  Sender: FDA-Public Use
  Company Number: None

PATIENT
  Sex: Male
  Weight: 74.8435 kg

DRUGS (1)
  1. CIPRO [Suspect]
     Dosage: 400 MG Q12 H IV
     Route: 042
     Dates: start: 20060331

REACTIONS (2)
  - HYPERSENSITIVITY [None]
  - THROAT TIGHTNESS [None]
